FAERS Safety Report 19413843 (Version 15)
Quarter: 2022Q3

REPORT INFORMATION
  Report Type: Report from Study
  Country: JP (occurrence: JP)
  Receive Date: 20210614
  Receipt Date: 20220901
  Transmission Date: 20221026
  Serious: Yes (Hospitalization)
  Sender: FDA-Public Use
  Company Number: NVSJ2021JP008709

PATIENT
  Age: 54 Year
  Sex: Female
  Weight: 48 kg

DRUGS (10)
  1. MAYZENT [Suspect]
     Active Substance: SIPONIMOD
     Indication: Secondary progressive multiple sclerosis
     Dosage: 0.25 MG, QD
     Route: 048
     Dates: start: 20210426, end: 20210427
  2. MAYZENT [Suspect]
     Active Substance: SIPONIMOD
     Dosage: 0.5 MG, QD
     Route: 048
     Dates: start: 20210428, end: 20210428
  3. MAYZENT [Suspect]
     Active Substance: SIPONIMOD
     Dosage: 0.75 MG, QD
     Route: 048
     Dates: start: 20210429, end: 20210429
  4. MAYZENT [Suspect]
     Active Substance: SIPONIMOD
     Dosage: 1.25 MG, QD
     Route: 048
     Dates: start: 20210430, end: 20210430
  5. MAYZENT [Suspect]
     Active Substance: SIPONIMOD
     Dosage: 2 MG, QD
     Route: 048
     Dates: start: 20210501, end: 20210530
  6. MAYZENT [Suspect]
     Active Substance: SIPONIMOD
     Dosage: 1 MG, QD
     Route: 048
     Dates: start: 20210601
  7. WARFARIN [Suspect]
     Active Substance: WARFARIN
     Indication: Product used for unknown indication
     Dosage: 5.5 MG
     Route: 048
     Dates: end: 20210601
  8. WARFARIN [Suspect]
     Active Substance: WARFARIN
     Dosage: 4 MG
     Route: 048
     Dates: start: 20210603
  9. WARFARIN [Suspect]
     Active Substance: WARFARIN
     Dosage: 5.5 MG
     Route: 048
     Dates: start: 20210605
  10. BISOPROLOL FUMARATE [Concomitant]
     Active Substance: BISOPROLOL FUMARATE
     Indication: Cardiac failure chronic
     Dosage: 1.25 MG
     Route: 065

REACTIONS (9)
  - Hepatic function abnormal [Recovering/Resolving]
  - Urinary tract infection [Recovered/Resolved]
  - Pyrexia [Recovered/Resolved]
  - Inflammation [Recovering/Resolving]
  - Lymphopenia [Recovering/Resolving]
  - White blood cell count decreased [Recovering/Resolving]
  - Back pain [Unknown]
  - Drug level increased [Recovering/Resolving]
  - Prothrombin time ratio increased [Recovering/Resolving]

NARRATIVE: CASE EVENT DATE: 20210518
